FAERS Safety Report 4616874-5 (Version None)
Quarter: 2005Q2

REPORT INFORMATION
  Report Type: 
  Country: None (occurrence: None)
  Receive Date: 20050311
  Receipt Date: 20041102
  Transmission Date: 20051028
  Serious: No
  Sender: FDA-Public Use
  Company Number: 2004-BP-09857BP

PATIENT
  Age: 63 Year
  Sex: Female

DRUGS (11)
  1. SPIRIVA [Suspect]
     Indication: CHRONIC OBSTRUCTIVE PULMONARY DISEASE
     Dosage: 18 MCG (18 MCG, 1 CAP QD), IH
     Route: 055
     Dates: start: 20040826
  2. SPIRIVA [Suspect]
     Indication: LUNG NEOPLASM MALIGNANT
     Dosage: 18 MCG (18 MCG, 1 CAP QD), IH
     Route: 055
     Dates: start: 20040826
  3. ADVAIR DISKUS 100/50 [Concomitant]
  4. COMBIVENT [Concomitant]
  5. EVISTA [Concomitant]
  6. CALCIUM + D (VITACAL) [Concomitant]
  7. VITAMIN E [Concomitant]
  8. PREVACID [Concomitant]
  9. NEURONTIN [Concomitant]
  10. DAYPRO [Concomitant]
  11. MULTIVITAMIN [Concomitant]

REACTIONS (2)
  - COUGH [None]
  - DRUG INEFFECTIVE [None]
